FAERS Safety Report 5495222-5 (Version None)
Quarter: 2007Q4

REPORT INFORMATION
  Report Type: 
  Country: None (occurrence: None)
  Receive Date: 20071024
  Receipt Date: 20071012
  Transmission Date: 20080405
  Serious: Yes (Other)
  Sender: FDA-Public Use
  Company Number: US-PFIZER INC-2007086730

PATIENT
  Sex: Female
  Weight: 123.4 kg

DRUGS (13)
  1. CELEBREX [Suspect]
  2. NEURONTIN [Suspect]
     Indication: GOUT
  3. PREDNISONE [Suspect]
     Indication: EXOSTOSIS
  4. DIOVAN HCT [Concomitant]
     Indication: HYPERTENSION
  5. LASIX [Concomitant]
  6. CRESTOR [Concomitant]
     Indication: LIPID METABOLISM DISORDER
  7. ACTOS [Concomitant]
     Indication: DIABETES MELLITUS
  8. JANUVIA [Concomitant]
     Indication: DIABETES MELLITUS
  9. STARLIX [Concomitant]
     Indication: DIABETES MELLITUS
  10. GLUCOTROL [Concomitant]
     Indication: DIABETES MELLITUS
  11. NEXIUM [Concomitant]
     Indication: GASTROOESOPHAGEAL REFLUX DISEASE
  12. POTASSIUM CHLORIDE [Concomitant]
  13. OSCAL [Concomitant]

REACTIONS (4)
  - DIABETIC NEUROPATHY [None]
  - INTERVERTEBRAL DISC PROTRUSION [None]
  - OVERWEIGHT [None]
  - ROTATOR CUFF SYNDROME [None]
